FAERS Safety Report 4894452-0 (Version None)
Quarter: 2006Q1

REPORT INFORMATION
  Report Type: 
  Country: None (occurrence: None)
  Receive Date: 20060127
  Receipt Date: 20051024
  Transmission Date: 20060701
  Serious: Yes (Other)
  Sender: FDA-Public Use
  Company Number: AU-ROCHE-422620

PATIENT
  Age: 80 Year
  Sex: Male
  Weight: 82 kg

DRUGS (1)
  1. XELODA [Suspect]
     Route: 048
     Dates: start: 20050901, end: 20050915

REACTIONS (1)
  - URETHRAL ULCER [None]
